FAERS Safety Report 22081055 (Version 2)
Quarter: 2023Q1

REPORT INFORMATION
  Report Type: Spontaneous
  Country: US (occurrence: US)
  Receive Date: 20230309
  Receipt Date: 20230324
  Transmission Date: 20230418
  Serious: Yes (Hospitalization)
  Sender: FDA-Public Use
  Company Number: US-TEVA-2023-US-2862401

PATIENT
  Age: 5 Year
  Sex: Female

DRUGS (9)
  1. METHOTREXATE [Suspect]
     Active Substance: METHOTREXATE
     Indication: Product used for unknown indication
     Route: 065
  2. HALOPERIDOL [Suspect]
     Active Substance: HALOPERIDOL
     Indication: Agitation
     Dosage: ADDITIONAL INFO: ROUTE: {INFUSION}
     Route: 050
  3. HALOPERIDOL [Suspect]
     Active Substance: HALOPERIDOL
     Indication: Delirium
  4. LEUCOVORIN [Suspect]
     Active Substance: LEUCOVORIN
     Indication: Mental status changes
     Route: 065
  5. KETAMINE [Suspect]
     Active Substance: KETAMINE
     Indication: Agitation
     Dosage: ADDITIONAL INFO: ROUTE: {INFUSION}
     Route: 050
  6. KETAMINE [Suspect]
     Active Substance: KETAMINE
     Indication: Delirium
  7. DILAUDID [Suspect]
     Active Substance: HYDROMORPHONE HYDROCHLORIDE
     Indication: Delirium
     Dosage: ADDITIONAL INFO: ROUTE: {INFUSION}
     Route: 050
  8. PRECEDEX [Suspect]
     Active Substance: DEXMEDETOMIDINE HYDROCHLORIDE
     Indication: Delirium
     Dosage: ADDITIONAL INFO: ROUTE: {INFUSION}
     Route: 050
  9. DEXTROMETHORPHAN [Suspect]
     Active Substance: DEXTROMETHORPHAN
     Indication: Mental status changes
     Route: 065

REACTIONS (5)
  - Mental status changes [Recovering/Resolving]
  - Delirium [Recovering/Resolving]
  - Encephalopathy [Recovering/Resolving]
  - Agitation [Recovering/Resolving]
  - Drug ineffective [Unknown]
